FAERS Safety Report 11214033 (Version 2)
Quarter: 2015Q3

REPORT INFORMATION
  Report Type: Report from Study
  Country: NL (occurrence: NL)
  Receive Date: 20150623
  Receipt Date: 20150723
  Transmission Date: 20151125
  Serious: Yes (Death, Hospitalization)
  Sender: FDA-Public Use
  Company Number: NL-ABBVIE-15P-114-1410475-00

PATIENT
  Age: 70 Year
  Sex: Female

DRUGS (1)
  1. DUODOPA [Suspect]
     Active Substance: CARBIDOPA\LEVODOPA
     Indication: PARKINSON^S DISEASE
     Dosage: 20/5MG/ML CONTINUOUS
     Route: 050
     Dates: start: 20150105

REACTIONS (8)
  - Coma [Not Recovered/Not Resolved]
  - Muscle rigidity [Recovered/Resolved]
  - Hemiparesis [Not Recovered/Not Resolved]
  - Nausea [Unknown]
  - General physical health deterioration [Not Recovered/Not Resolved]
  - Parkinson^s disease [Not Recovered/Not Resolved]
  - Brain stem stroke [Fatal]
  - Cerebrovascular accident [Not Recovered/Not Resolved]

NARRATIVE: CASE EVENT DATE: 20150626
